FAERS Safety Report 16377572 (Version 1)
Quarter: 2019Q2

REPORT INFORMATION
  Report Type: Spontaneous
  Country: US (occurrence: US)
  Receive Date: 20190425
  Receipt Date: 20190425
  Transmission Date: 20190711
  Serious: No
  Sender: FDA-Public Use
  Company Number: None

PATIENT
  Age: 57 Year
  Sex: Male
  Weight: 118.84 kg

DRUGS (4)
  1. REPATHA [Suspect]
     Active Substance: EVOLOCUMAB
     Indication: HYPERLIPIDAEMIA
     Dosage: ?          OTHER DOSE:ADMINISTER 3.5ML;?
     Route: 058
     Dates: start: 201902
  2. REPATHA [Suspect]
     Active Substance: EVOLOCUMAB
     Indication: TYPE V HYPERLIPIDAEMIA
     Dosage: ?          OTHER DOSE:ADMINISTER 3.5ML;?
     Route: 058
     Dates: start: 201902
  3. REPATHA [Suspect]
     Active Substance: EVOLOCUMAB
     Indication: PERIPHERAL VASCULAR DISORDER
     Dosage: ?          OTHER DOSE:ADMINISTER 3.5ML;?
     Route: 058
     Dates: start: 201902
  4. REPATHA [Suspect]
     Active Substance: EVOLOCUMAB
     Indication: ACUTE MYOCARDIAL INFARCTION
     Dosage: ?          OTHER DOSE:ADMINISTER 3.5ML;?
     Route: 058
     Dates: start: 201902

REACTIONS (3)
  - Gastric disorder [None]
  - Gallbladder disorder [None]
  - Vomiting [None]
